FAERS Safety Report 24411553 (Version 2)
Quarter: 2024Q4

REPORT INFORMATION
  Report Type: Spontaneous
  Country: JP (occurrence: None)
  Receive Date: 20241008
  Receipt Date: 20241111
  Transmission Date: 20250115
  Serious: Yes (Death, Other)
  Sender: ALEXION PHARMACEUTICALS
  Company Number: JP-ASTRAZENECA-240105177_013120_P_1

PATIENT

DRUGS (28)
  1. DURVALUMAB [Suspect]
     Active Substance: DURVALUMAB
     Indication: Small cell lung cancer
  2. DURVALUMAB [Suspect]
     Active Substance: DURVALUMAB
  3. DURVALUMAB [Suspect]
     Active Substance: DURVALUMAB
  4. DURVALUMAB [Suspect]
     Active Substance: DURVALUMAB
  5. DURVALUMAB [Suspect]
     Active Substance: DURVALUMAB
     Dosage: 1500 MILLIGRAM, Q4W
  6. DURVALUMAB [Suspect]
     Active Substance: DURVALUMAB
     Dosage: 1500 MILLIGRAM, Q4W
  7. DURVALUMAB [Suspect]
     Active Substance: DURVALUMAB
     Dosage: 1500 MILLIGRAM, Q4W
  8. DURVALUMAB [Suspect]
     Active Substance: DURVALUMAB
     Dosage: 1500 MILLIGRAM, Q4W
  9. DURVALUMAB [Suspect]
     Active Substance: DURVALUMAB
  10. DURVALUMAB [Suspect]
     Active Substance: DURVALUMAB
  11. DURVALUMAB [Suspect]
     Active Substance: DURVALUMAB
  12. DURVALUMAB [Suspect]
     Active Substance: DURVALUMAB
  13. DURVALUMAB [Suspect]
     Active Substance: DURVALUMAB
  14. DURVALUMAB [Suspect]
     Active Substance: DURVALUMAB
  15. DURVALUMAB [Suspect]
     Active Substance: DURVALUMAB
  16. DURVALUMAB [Suspect]
     Active Substance: DURVALUMAB
  17. ETOPOSIDE [Concomitant]
     Active Substance: ETOPOSIDE
     Indication: Small cell lung cancer
     Dosage: DOSE UNKNOWN, ON THE FIRST, SECOND AND THIRD DAYS OF EACH CYCLE
     Route: 065
  18. ETOPOSIDE [Concomitant]
     Active Substance: ETOPOSIDE
     Dosage: DOSE UNKNOWN, ON THE FIRST, SECOND AND THIRD DAYS OF EACH CYCLE
  19. ETOPOSIDE [Concomitant]
     Active Substance: ETOPOSIDE
     Dosage: DOSE UNKNOWN, ON THE FIRST, SECOND AND THIRD DAYS OF EACH CYCLE
     Route: 065
  20. ETOPOSIDE [Concomitant]
     Active Substance: ETOPOSIDE
     Dosage: DOSE UNKNOWN, ON THE FIRST, SECOND AND THIRD DAYS OF EACH CYCLE
  21. ETOPOSIDE [Concomitant]
     Active Substance: ETOPOSIDE
     Dosage: DOSE UNKNOWN, ON DAYS 1, 2, AND 3 OF EACH CYCLE
     Route: 065
  22. ETOPOSIDE [Concomitant]
     Active Substance: ETOPOSIDE
     Dosage: DOSE UNKNOWN, ON DAYS 1, 2, AND 3 OF EACH CYCLE
  23. ETOPOSIDE [Concomitant]
     Active Substance: ETOPOSIDE
     Dosage: DOSE UNKNOWN, ON DAYS 1, 2, AND 3 OF EACH CYCLE
     Route: 065
  24. ETOPOSIDE [Concomitant]
     Active Substance: ETOPOSIDE
     Dosage: DOSE UNKNOWN, ON DAYS 1, 2, AND 3 OF EACH CYCLE
  25. ETOPOSIDE [Concomitant]
     Active Substance: ETOPOSIDE
     Dosage: DOSE UNKNOWN, ON DAYS 1, 2, AND 3 OF EACH CYCLE
     Route: 065
  26. ETOPOSIDE [Concomitant]
     Active Substance: ETOPOSIDE
     Dosage: DOSE UNKNOWN, ON DAYS 1, 2, AND 3 OF EACH CYCLE
  27. ETOPOSIDE [Concomitant]
     Active Substance: ETOPOSIDE
     Dosage: DOSE UNKNOWN, ON DAYS 1, 2, AND 3 OF EACH CYCLE
     Route: 065
  28. ETOPOSIDE [Concomitant]
     Active Substance: ETOPOSIDE
     Dosage: DOSE UNKNOWN, ON DAYS 1, 2, AND 3 OF EACH CYCLE

REACTIONS (1)
  - Death [Fatal]
